FAERS Safety Report 14278115 (Version 1)
Quarter: 2017Q4

REPORT INFORMATION
  Report Type: Spontaneous
  Country: US (occurrence: US)
  Receive Date: 20171211
  Receipt Date: 20171211
  Transmission Date: 20180321
  Serious: Yes (Other)
  Sender: FDA-Public Use
  Company Number: US-OTSUKA-2017_012680

PATIENT
  Age: 60 Year
  Sex: Female

DRUGS (14)
  1. ABILIFY [Suspect]
     Active Substance: ARIPIPRAZOLE
     Indication: DEPRESSION
     Dosage: UNK
     Route: 065
  2. REMERON [Suspect]
     Active Substance: MIRTAZAPINE
     Indication: DEPRESSION
     Dosage: UNK
     Route: 065
     Dates: start: 2014
  3. MIRTAZAPINE. [Suspect]
     Active Substance: MIRTAZAPINE
     Indication: DEPRESSION
     Dosage: UNK
     Route: 065
     Dates: start: 2014
  4. OMEGA 3 [Concomitant]
     Active Substance: OMEGA-3 FATTY ACIDS
     Indication: PRODUCT USED FOR UNKNOWN INDICATION
     Dosage: UNK
     Route: 065
  5. BUPROPION. [Suspect]
     Active Substance: BUPROPION
     Indication: DEPRESSION
     Dosage: 75 MG, UNK
     Route: 065
  6. BUPROPION. [Suspect]
     Active Substance: BUPROPION
     Dosage: 450 MG, UNK
     Route: 065
  7. BUPROPION. [Suspect]
     Active Substance: BUPROPION
     Dosage: 450 MG, UNK
     Route: 065
  8. LEVOTHYROXINE. [Concomitant]
     Active Substance: LEVOTHYROXINE
     Indication: PRODUCT USED FOR UNKNOWN INDICATION
     Dosage: UNK
     Route: 065
  9. BUPROPION. [Suspect]
     Active Substance: BUPROPION
     Dosage: 75 MG, UNK
     Route: 065
  10. BUPROPION. [Suspect]
     Active Substance: BUPROPION
     Dosage: 100 MG, UNK
     Route: 065
  11. BUPROPION. [Suspect]
     Active Substance: BUPROPION
     Dosage: 75 MG, UNK
     Route: 065
  12. VALTREX [Suspect]
     Active Substance: VALACYCLOVIR HYDROCHLORIDE
     Indication: GENITAL HERPES
     Dosage: 1 G, QD
     Route: 065
     Dates: start: 2009
  13. BUPROPION. [Suspect]
     Active Substance: BUPROPION
     Indication: DEPRESSION
     Dosage: 75 MG, UNK
     Route: 065
  14. BUPROPION. [Suspect]
     Active Substance: BUPROPION
     Indication: PRODUCT USED FOR UNKNOWN INDICATION
     Dosage: 100 MG, UNK
     Route: 065

REACTIONS (18)
  - Depression [Recovering/Resolving]
  - Renal disorder [Unknown]
  - Mood swings [Unknown]
  - Insomnia [Recovering/Resolving]
  - Abdominal discomfort [Unknown]
  - Inappropriate prescribing [Unknown]
  - Persistent depressive disorder [Recovering/Resolving]
  - Condition aggravated [Recovering/Resolving]
  - Mental disorder [Unknown]
  - Fatigue [Unknown]
  - Drug ineffective [Unknown]
  - Micturition disorder [Unknown]
  - Psychiatric symptom [Recovering/Resolving]
  - Psychotic disorder [Recovering/Resolving]
  - Dysphagia [Unknown]
  - Nausea [Unknown]
  - Encephalopathy [Unknown]
  - Tremor [Unknown]

NARRATIVE: CASE EVENT DATE: 2010
